FAERS Safety Report 5869111-8 (Version None)
Quarter: 2008Q3

REPORT INFORMATION
  Report Type: 
  Country: None (occurrence: None)
  Receive Date: 20080828
  Receipt Date: 20080819
  Transmission Date: 20090109
  Serious: Yes (Death, Hospitalization)
  Sender: FDA-Public Use
  Company Number: 2008AL009651

PATIENT
  Age: 81 Year
  Sex: Male
  Weight: 89.8122 kg

DRUGS (1)
  1. DIGOXIN [Suspect]
     Indication: CARDIAC DISORDER
     Dosage: DAILY, PO
     Route: 048
     Dates: start: 20061109, end: 20071211

REACTIONS (1)
  - PANCREATIC CARCINOMA [None]
